FAERS Safety Report 21553331 (Version 1)
Quarter: 2022Q4

REPORT INFORMATION
  Report Type: Spontaneous
  Country: US (occurrence: US)
  Receive Date: 20221104
  Receipt Date: 20221104
  Transmission Date: 20230112
  Serious: Yes (Death, Life-Threatening, Hospitalization, Other)
  Sender: FDA-Public Use
  Company Number: US-009507513-2210USA009428

PATIENT
  Age: 32 Year
  Sex: Male

DRUGS (1)
  1. BRIDION [Suspect]
     Active Substance: SUGAMMADEX
     Indication: Nephroscopy
     Dosage: 260 MILLIGRAM, ONCE
     Route: 042
     Dates: start: 20220929

REACTIONS (2)
  - Cardiac arrest [Fatal]
  - Post procedural complication [Unknown]

NARRATIVE: CASE EVENT DATE: 20220929
